FAERS Safety Report 12635376 (Version 2)
Quarter: 2016Q4

REPORT INFORMATION
  Report Type: Report from Study
  Country: US (occurrence: US)
  Receive Date: 20160809
  Receipt Date: 20161102
  Transmission Date: 20170207
  Serious: Yes (Hospitalization, Other)
  Sender: FDA-Public Use
  Company Number: US-AMGEN-USASP2016099641

PATIENT
  Age: 59 Year
  Sex: Female

DRUGS (2)
  1. ENBREL [Suspect]
     Active Substance: ETANERCEPT
     Indication: RHEUMATOID ARTHRITIS
     Dosage: 50 MG, UNK
     Route: 065
     Dates: start: 20041122
  2. METHOTREXATE. [Concomitant]
     Active Substance: METHOTREXATE
     Dosage: UNK

REACTIONS (7)
  - Dysphonia [Unknown]
  - Abdominal operation [Unknown]
  - Cholecystectomy [Unknown]
  - Arthropathy [Unknown]
  - Dactylitis [Unknown]
  - Lung neoplasm malignant [Unknown]
  - Hernia repair [Unknown]

NARRATIVE: CASE EVENT DATE: 2011
